FAERS Safety Report 9450420 (Version 1)
Quarter: 2013Q3

REPORT INFORMATION
  Report Type: Report from Study
  Country: GB (occurrence: AU)
  Receive Date: 20130809
  Receipt Date: 20130809
  Transmission Date: 20140515
  Serious: Yes (Other)
  Sender: FDA-Public Use
  Company Number: AU-PFIZER INC-2013227951

PATIENT
  Age: 14 Year
  Sex: 0

DRUGS (16)
  1. DAUNORUBICIN HCL [Suspect]
     Indication: ACUTE MYELOID LEUKAEMIA
     Dosage: 50 MG/M2 I.V. D 1, 3, 5
     Route: 042
  2. CYTARABINE [Suspect]
     Indication: ACUTE MYELOID LEUKAEMIA
     Dosage: 100MG/M2 12-H I.V. D 1-10;
     Route: 042
  3. CYTARABINE [Suspect]
     Dosage: 100MG/M2 12-H I.V. D 1-10;
     Route: 042
  4. CYTARABINE [Suspect]
     Dosage: 200 MG/M2 CONTINUOUS INFUSION D 1-5;
  5. CYTARABINE [Suspect]
     Dosage: 1 G/M2 12 H I.V. D 1-3
     Route: 042
  6. CYTARABINE [Suspect]
     Dosage: 3 G/M2 12-H I.V. D 1, 2, 8, 9;
     Route: 042
  7. ETOPOSIDE [Suspect]
     Indication: ACUTE MYELOID LEUKAEMIA
     Dosage: 100MG/M2 I.V. D 1-5
     Route: 042
  8. ETOPOSIDE [Suspect]
     Dosage: 100MG/M2 I.V. D 1-5
     Route: 042
  9. ETOPOSIDE [Suspect]
     Dosage: 100MG/M2 I.V. D 1-5
     Route: 042
  10. AMSACRINE [Suspect]
     Indication: ACUTE MYELOID LEUKAEMIA
     Dosage: 100 MG/M2 D 1-5;
  11. MITOZANTRONE [Suspect]
     Indication: ACUTE MYELOID LEUKAEMIA
     Dosage: 12 MG/M2 I.V. D 1, 3, 5;
     Route: 042
  12. MITOZANTRONE [Suspect]
     Dosage: 10 MG/M2 I.V. D 1-5;
     Route: 042
  13. METHOTREXATE [Suspect]
     Indication: ACUTE MYELOID LEUKAEMIA
     Dosage: UNK
  14. CYCLOPHOSPHAMIDE [Suspect]
     Indication: STEM CELL TRANSPLANT
     Dosage: UNK
  15. PREDNISOLONE [Suspect]
     Indication: CHRONIC GRAFT VERSUS HOST DISEASE
     Dosage: UNK
  16. ASPARAGINASE [Suspect]
     Dosage: 6000 U/M2 S.C. D 2, 9

REACTIONS (1)
  - Osteonecrosis [Not Recovered/Not Resolved]
